FAERS Safety Report 8274664-9 (Version None)
Quarter: 2012Q2

REPORT INFORMATION
  Report Type: 
  Country: None (occurrence: None)
  Receive Date: 20120411
  Receipt Date: 20120403
  Transmission Date: 20120825
  Serious: Yes (Other)
  Sender: FDA-Public Use
  Company Number: JP-GLAXOSMITHKLINE-B0793923A

PATIENT

DRUGS (4)
  1. PAXIL [Suspect]
     Dosage: 40MG PER DAY
     Route: 048
  2. PAXIL [Suspect]
     Dosage: 10MG PER DAY
     Route: 048
  3. PAXIL [Suspect]
     Dosage: 15MG PER DAY
     Route: 048
  4. PAXIL [Suspect]
     Dosage: 20MG PER DAY
     Route: 048

REACTIONS (9)
  - CONVULSION [None]
  - NAUSEA [None]
  - EYE PAIN [None]
  - DIZZINESS [None]
  - PARAESTHESIA [None]
  - HALLUCINATION, AUDITORY [None]
  - TINNITUS [None]
  - OEDEMA [None]
  - DRUG WITHDRAWAL SYNDROME [None]
